FAERS Safety Report 8983696 (Version 2)
Quarter: 2012Q4

REPORT INFORMATION
  Report Type: Report from Study
  Country: CA (occurrence: CA)
  Receive Date: 20121224
  Receipt Date: 20121230
  Transmission Date: 20130627
  Serious: Yes (Other)
  Sender: FDA-Public Use
  Company Number: CA-UCBSA-073655

PATIENT
  Age: 67 Year
  Sex: Female

DRUGS (15)
  1. CIMZIA [Suspect]
     Indication: RHEUMATOID ARTHRITIS
     Route: 058
     Dates: start: 20110806, end: 20110903
  2. CIMZIA [Suspect]
     Indication: RHEUMATOID ARTHRITIS
     Route: 058
     Dates: start: 20110904, end: 20120218
  3. FOLIC ACID [Concomitant]
  4. METHOTREXATE [Concomitant]
  5. OXYCONTIN [Concomitant]
  6. ATROVENT [Concomitant]
  7. ADVAIR [Concomitant]
  8. HYDROCHLOROTHIAZIDE [Concomitant]
  9. DOMPERIDONE [Concomitant]
  10. ACTONEL [Concomitant]
  11. TECTA [Concomitant]
  12. LYRICA [Concomitant]
  13. TRAZADONE [Concomitant]
  14. MULTIVITAMIN [Concomitant]
  15. MILK OF MAGNESIA [Concomitant]

REACTIONS (1)
  - Hip arthroplasty [Not Recovered/Not Resolved]
